FAERS Safety Report 16768265 (Version 3)
Quarter: 2019Q3

REPORT INFORMATION
  Report Type: Report from Study
  Country: JP (occurrence: JP)
  Receive Date: 20190903
  Receipt Date: 20190910
  Transmission Date: 20191005
  Serious: Yes (Hospitalization)
  Sender: FDA-Public Use
  Company Number: JP-EISAI MEDICAL RESEARCH-EC-2019-061443

PATIENT
  Age: 58 Year
  Sex: Male
  Weight: 72 kg

DRUGS (3)
  1. SODIUM RABEPRAZOLE [Concomitant]
     Active Substance: RABEPRAZOLE SODIUM
  2. LEVOFLOXACIN HEMIHYDRATE [Concomitant]
     Active Substance: LEVOFLOXACIN
  3. ERIBULIN [Suspect]
     Active Substance: ERIBULIN
     Indication: GASTRIC CANCER
     Route: 041
     Dates: start: 20190823, end: 20190823

REACTIONS (1)
  - Metastases to lymph nodes [Not Recovered/Not Resolved]

NARRATIVE: CASE EVENT DATE: 20190824
